FAERS Safety Report 7286831-1 (Version None)
Quarter: 2011Q1

REPORT INFORMATION
  Report Type: 
  Country: None (occurrence: None)
  Receive Date: 20110210
  Receipt Date: 20110128
  Transmission Date: 20110831
  Serious: Yes (Hospitalization, Disabling)
  Sender: FDA-Public Use
  Company Number: DE-MYLANLABS-2011S1002288

PATIENT
  Sex: Male

DRUGS (3)
  1. MYCOPHENOLATE MOFETIL [Suspect]
     Indication: IMMUNOSUPPRESSION
     Route: 065
  2. PREDNISOLONE ACETATE [Suspect]
     Indication: IMMUNOSUPPRESSION
     Dosage: 10-40 MG/DAY, ADJUSTED BY HAEMATOLOGISTS AS REQUIRED.
     Route: 065
  3. DEXAMETHASONE [Suspect]
     Dosage: TWICE A DAY, BOTH EYES.
     Route: 061
     Dates: start: 20040501

REACTIONS (2)
  - CORNEAL PERFORATION [None]
  - HERPES SIMPLEX OPHTHALMIC [None]
